FAERS Safety Report 21268369 (Version 1)
Quarter: 2022Q3

REPORT INFORMATION
  Report Type: Spontaneous
  Country: FR (occurrence: FR)
  Receive Date: 20220830
  Receipt Date: 20220830
  Transmission Date: 20221027
  Serious: Yes (Hospitalization)
  Sender: FDA-Public Use
  Company Number: None

PATIENT
  Age: 17 Year
  Sex: Male
  Weight: 58 kg

DRUGS (4)
  1. DEXAMETHASONE [Suspect]
     Active Substance: DEXAMETHASONE
     Indication: Wisdom teeth removal
     Route: 042
     Dates: start: 20220805
  2. KETOPROFEN [Suspect]
     Active Substance: KETOPROFEN
     Indication: Wisdom teeth removal
     Route: 042
     Dates: start: 20220805
  3. PROPOFOL [Suspect]
     Active Substance: PROPOFOL
     Indication: Wisdom teeth removal
     Route: 042
     Dates: start: 20220805
  4. ACETAMINOPHEN\CODEINE PHOSPHATE [Suspect]
     Active Substance: ACETAMINOPHEN\CODEINE PHOSPHATE
     Indication: Wisdom teeth removal
     Dosage: 3 TO 4 TABLETS
     Route: 048
     Dates: start: 20220805, end: 20220807

REACTIONS (1)
  - Pancreatitis acute [Recovered/Resolved]

NARRATIVE: CASE EVENT DATE: 20220807
